FAERS Safety Report 4458205-X (Version None)
Quarter: 2004Q3

REPORT INFORMATION
  Report Type: 
  Country: None (occurrence: None)
  Receive Date: 20040917
  Receipt Date: 20040428
  Transmission Date: 20050211
  Serious: Yes (Hospitalization)
  Sender: FDA-Public Use
  Company Number: US-JNJFOC-20040305189

PATIENT
  Sex: Female

DRUGS (2)
  1. TOPAMAX [Suspect]
     Indication: POST-TRAUMATIC EPILEPSY
     Dosage: 200 MG, IN 1 DAY, ORAL
     Route: 048
     Dates: start: 20010101
  2. BETA BLOCKER (BETA BLOCKING AGENTS) [Suspect]
     Indication: HYPERTENSION

REACTIONS (3)
  - ANKLE FRACTURE [None]
  - FALL [None]
  - HYPOTENSION [None]
